FAERS Safety Report 9508929 (Version 2)
Quarter: 2014Q1

REPORT INFORMATION
  Report Type: Spontaneous
  Country: US (occurrence: None)
  Receive Date: 20130305
  Receipt Date: 20140306
  Transmission Date: 20141002
  Serious: Yes (Other)
  Sender: FDA-Public Use
  Company Number: 163-21880-12121472

PATIENT
  Age: 78 Year
  Sex: Female
  Weight: 67.1 kg

DRUGS (1)
  1. REVLIMID (LENALIDOMIDE) (25 MILLIGRAM, CAPSULES) [Suspect]
     Indication: PLASMA CELL MYELOMA
     Dosage: 21 IN 21 D
     Route: 048
     Dates: start: 201110

REACTIONS (4)
  - Diarrhoea [None]
  - Bacterial infection [None]
  - Gastrointestinal disorder [None]
  - Petechiae [None]
